FAERS Safety Report 19501606 (Version 2)
Quarter: 2021Q4

REPORT INFORMATION
  Report Type: Spontaneous
  Country: JP (occurrence: JP)
  Receive Date: 20210707
  Receipt Date: 20211207
  Transmission Date: 20220303
  Serious: Yes (Life-Threatening, Other)
  Sender: FDA-Public Use
  Company Number: JP-DSJP-DSJ-2021-120268

PATIENT
  Age: 67 Year
  Sex: Male
  Weight: 58 kg

DRUGS (8)
  1. EDOXABAN TOSYLATE [Suspect]
     Active Substance: EDOXABAN TOSYLATE
     Indication: Atrial fibrillation
     Dosage: 60 MG, QD
     Route: 048
  2. EDOXABAN TOSYLATE [Suspect]
     Active Substance: EDOXABAN TOSYLATE
     Dosage: 30 MG, QD
     Route: 048
     Dates: start: 20210514
  3. FUROSEMIDE [Concomitant]
     Active Substance: FUROSEMIDE
     Indication: Hypertension
     Dosage: 20 MG, QD
     Route: 048
  4. EPLERENONE [Concomitant]
     Active Substance: EPLERENONE
     Indication: Hypertension
     Dosage: 25 MG, QD
     Route: 048
  5. BISOPROLOL FUMARATE [Concomitant]
     Active Substance: BISOPROLOL FUMARATE
     Indication: Atrial fibrillation
     Dosage: 2.5 MG, QD
     Route: 048
  6. BISOPROLOL FUMARATE [Concomitant]
     Active Substance: BISOPROLOL FUMARATE
     Dosage: 1.25 MG, QD
     Route: 048
  7. AZILSARTAN KAMEDOXOMIL [Concomitant]
     Active Substance: AZILSARTAN KAMEDOXOMIL
     Indication: Hypertension
     Dosage: 20 MG, QD
     Route: 048
  8. AMPICILLIN SODIUM\SULBACTAM SODIUM [Concomitant]
     Active Substance: AMPICILLIN SODIUM\SULBACTAM SODIUM
     Indication: Endocarditis
     Dosage: 3 G, TID
     Route: 041
     Dates: start: 20210330, end: 20210428

REACTIONS (2)
  - Cerebral haemorrhage [Recovered/Resolved with Sequelae]
  - Ruptured cerebral aneurysm [Recovered/Resolved with Sequelae]

NARRATIVE: CASE EVENT DATE: 20210420
